FAERS Safety Report 23155601 (Version 1)
Quarter: 2023Q4

REPORT INFORMATION
  Report Type: Spontaneous
  Country: US (occurrence: US)
  Receive Date: 20231107
  Receipt Date: 20231107
  Transmission Date: 20240110
  Serious: No
  Sender: FDA-Public Use
  Company Number: US-SA-SAC20231031000740

PATIENT
  Age: 47 Year
  Sex: Female
  Weight: 74.8 kg

DRUGS (4)
  1. DUPIXENT [Suspect]
     Active Substance: DUPILUMAB
     Indication: Dermatitis atopic
     Dosage: 300 MG, QOW
     Route: 058
     Dates: start: 20230331
  2. IBUPROFEN [Concomitant]
     Active Substance: IBUPROFEN
  3. NON ASPIRIN [Concomitant]
  4. MELATONIN [Concomitant]
     Active Substance: MELATONIN

REACTIONS (4)
  - Gastrooesophageal reflux disease [Unknown]
  - Injection site inflammation [Not Recovered/Not Resolved]
  - Injection site erythema [Not Recovered/Not Resolved]
  - Injection site pain [Unknown]

NARRATIVE: CASE EVENT DATE: 20230101
